FAERS Safety Report 23739185 (Version 2)
Quarter: 2024Q2

REPORT INFORMATION
  Report Type: Report from Study
  Country: TW (occurrence: TW)
  Receive Date: 20240413
  Receipt Date: 20240501
  Transmission Date: 20240715
  Serious: Yes (Hospitalization, Other)
  Sender: FDA-Public Use
  Company Number: TW-ABBVIE-5716379

PATIENT
  Age: 61 Year
  Sex: Female
  Weight: 51 kg

DRUGS (3)
  1. RINVOQ [Suspect]
     Active Substance: UPADACITINIB
     Indication: Psoriatic arthropathy
     Route: 048
     Dates: start: 20230615
  2. METHOTREXATE [Concomitant]
     Active Substance: METHOTREXATE
     Indication: Psoriatic arthropathy
     Dosage: 12.5MG
     Dates: start: 20060730, end: 20171101
  3. METHOTREXATE [Concomitant]
     Active Substance: METHOTREXATE
     Indication: Psoriatic arthropathy
     Dosage: 12.5MG
     Dates: start: 20171102

REACTIONS (18)
  - Pulmonary tuberculosis [Not Recovered/Not Resolved]
  - Nephrolithiasis [Unknown]
  - Paratracheal lymphadenopathy [Unknown]
  - Pneumothorax [Unknown]
  - Pleural effusion [Unknown]
  - Scoliosis [Unknown]
  - Pulmonary mass [Unknown]
  - Pulmonary haemorrhage [Unknown]
  - Adenocarcinoma [Unknown]
  - Aspiration [Unknown]
  - Hyperchromasia [Unknown]
  - Colon cancer [Unknown]
  - Hepatic mass [Unknown]
  - Lupus-like syndrome [Unknown]
  - Erythema nodosum [Unknown]
  - Urinary tract infection [Unknown]
  - Metastases to lymph nodes [Unknown]
  - Metastases to lung [Unknown]

NARRATIVE: CASE EVENT DATE: 20240328
